FAERS Safety Report 8576941-0 (Version None)
Quarter: 2012Q3

REPORT INFORMATION
  Report Type: 
  Country: None (occurrence: None)
  Receive Date: 20120807
  Receipt Date: 20120802
  Transmission Date: 20120928
  Serious: Yes (Other)
  Sender: FDA-Public Use
  Company Number: PHHY2011US51678

PATIENT
  Sex: Male

DRUGS (3)
  1. GILENYA [Suspect]
     Indication: MULTIPLE SCLEROSIS
     Dosage: 0.5 MG, QD
     Route: 048
     Dates: start: 20101229, end: 20110501
  2. PROVIGIL [Concomitant]
  3. GILENYA [Suspect]
     Dosage: 0.5 MG, UNK
     Route: 048
     Dates: end: 20120301

REACTIONS (4)
  - AFFECT LABILITY [None]
  - VITAMIN D DECREASED [None]
  - BLOOD BILIRUBIN INCREASED [None]
  - FATIGUE [None]
